FAERS Safety Report 23331171 (Version 3)
Quarter: 2024Q1

REPORT INFORMATION
  Report Type: Spontaneous
  Country: JP (occurrence: JP)
  Receive Date: 20231222
  Receipt Date: 20240209
  Transmission Date: 20240409
  Serious: Yes (Hospitalization, Other)
  Sender: FDA-Public Use
  Company Number: JP-SA-2023SA374924

PATIENT
  Age: 48 Year
  Sex: Female

DRUGS (3)
  1. LIBTAYO [Suspect]
     Active Substance: CEMIPLIMAB-RWLC
     Indication: Cervix carcinoma recurrent
     Dosage: DAILY DOSE: 350 MG
     Route: 041
     Dates: start: 20230706, end: 20231012
  2. CELECOXIB [Concomitant]
     Active Substance: CELECOXIB
     Indication: Product used for unknown indication
     Dosage: UNK
     Route: 065
     Dates: start: 20220509
  3. MAGNESIUM OXIDE [Concomitant]
     Active Substance: MAGNESIUM OXIDE
     Indication: Product used for unknown indication
     Dosage: UNK
     Route: 065
     Dates: start: 20220509

REACTIONS (3)
  - Immune-mediated hepatic disorder [Recovering/Resolving]
  - Abdominal pain [Recovering/Resolving]
  - Pyrexia [Recovering/Resolving]

NARRATIVE: CASE EVENT DATE: 20231130
